FAERS Safety Report 7497973-X (Version None)
Quarter: 2011Q2

REPORT INFORMATION
  Report Type: 
  Country: None (occurrence: None)
  Receive Date: 20110524
  Receipt Date: 20110516
  Transmission Date: 20111010
  Serious: Yes (Hospitalization)
  Sender: FDA-Public Use
  Company Number: US-BIOGENIDEC-2011BI000616

PATIENT
  Age: 50 Year
  Sex: Female

DRUGS (4)
  1. AMPYRA [Concomitant]
     Indication: GAIT DISTURBANCE
     Dates: start: 20101001
  2. TYSABRI [Suspect]
     Indication: MULTIPLE SCLEROSIS
     Route: 042
     Dates: start: 20080620, end: 20110401
  3. TYSABRI [Suspect]
     Route: 042
     Dates: start: 20110501
  4. AMPYRA [Concomitant]
     Indication: BALANCE DISORDER
     Dates: start: 20101001

REACTIONS (6)
  - MULTIPLE SCLEROSIS RELAPSE [None]
  - BLOOD GLUCOSE INCREASED [None]
  - BURNING SENSATION [None]
  - ALOPECIA [None]
  - URINARY TRACT INFECTION [None]
  - BAND SENSATION [None]
